FAERS Safety Report 4694658-X (Version None)
Quarter: 2005Q2

REPORT INFORMATION
  Report Type: 
  Country: None (occurrence: None)
  Receive Date: 20050620
  Receipt Date: 20050526
  Transmission Date: 20051028
  Serious: Yes (Other)
  Sender: FDA-Public Use
  Company Number: CA-GLAXOSMITHKLINE-A0561027A

PATIENT
  Age: 10 Year
  Sex: Male

DRUGS (1)
  1. DEXEDRINE [Suspect]
     Indication: ATTENTION DEFICIT/HYPERACTIVITY DISORDER
     Route: 048
     Dates: start: 20050524, end: 20050524

REACTIONS (5)
  - DRUG ADMINISTRATION ERROR [None]
  - ORAL PRURITUS [None]
  - SENSATION OF HEAVINESS [None]
  - SWOLLEN TONGUE [None]
  - TONGUE DISORDER [None]
